FAERS Safety Report 5803979-6 (Version None)
Quarter: 2008Q3

REPORT INFORMATION
  Report Type: 
  Country: None (occurrence: None)
  Receive Date: 20080703
  Receipt Date: 20080624
  Transmission Date: 20090109
  Serious: Yes (Death)
  Sender: FDA-Public Use
  Company Number: 2008AL007546

PATIENT
  Age: 90 Year
  Sex: Male

DRUGS (3)
  1. DIGOXIN [Suspect]
     Dosage: BID, PO
     Route: 048
  2. DIGOXIN [Suspect]
     Dosage: DAILY, PO
     Route: 048
  3. ATACAND [Concomitant]

REACTIONS (1)
  - VOMITING [None]
